FAERS Safety Report 21257569 (Version 1)
Quarter: 2022Q3

REPORT INFORMATION
  Report Type: Spontaneous
  Country: US (occurrence: None)
  Receive Date: 20220826
  Receipt Date: 20220826
  Transmission Date: 20221027
  Serious: No
  Sender: FDA-Public Use
  Company Number: 2022A290958

PATIENT

DRUGS (1)
  1. ZOMIG [Suspect]
     Active Substance: ZOLMITRIPTAN
     Dosage: 5.0MG UNKNOWN
     Route: 045

REACTIONS (7)
  - Oral discomfort [Unknown]
  - Throat irritation [Unknown]
  - Decreased activity [Unknown]
  - Migraine [Unknown]
  - Oesophageal discomfort [Unknown]
  - Vomiting [Unknown]
  - Nausea [Unknown]
